FAERS Safety Report 5060337-2 (Version None)
Quarter: 2006Q3

REPORT INFORMATION
  Report Type: 
  Country: None (occurrence: None)
  Receive Date: 20060718
  Receipt Date: 20060628
  Transmission Date: 20061208
  Serious: Yes (Hospitalization)
  Sender: FDA-Public Use
  Company Number: US_0508121134

PATIENT
  Age: 76 Year
  Sex: Female
  Weight: 60.9 kg

DRUGS (7)
  1. TERIPARATIDE(TERIPARATIDE) PEN, DISPOSABLE [Suspect]
     Indication: OSTEOPOROSIS
     Dosage: 20 UG, DAILY (1/D), SUBCUTANEOUS
     Route: 058
     Dates: start: 20050216
  2. PREMARIN [Concomitant]
  3. ACTONEL [Concomitant]
  4. CALCIUM W/VITAMIN D NOS (CALCIUM W/VITAMIN D NOS) [Concomitant]
  5. MULTI-VITAMIN [Concomitant]
  6. PERCOCET [Concomitant]
  7. FORTEO PEN,250MCG/ML (3ML) (FORTEO PEN 250MCG/ML (3ML)) PEN,DISPOSABLE [Concomitant]

REACTIONS (17)
  - ACTIVITIES OF DAILY LIVING IMPAIRED [None]
  - ATELECTASIS [None]
  - CARDIOMYOPATHY [None]
  - CHOLECYSTITIS [None]
  - CHOLELITHIASIS [None]
  - CONDITION AGGRAVATED [None]
  - ECCHYMOSIS [None]
  - GAIT DISTURBANCE [None]
  - HAEMOGLOBIN DECREASED [None]
  - HYPOXIA [None]
  - NECK PAIN [None]
  - OEDEMA PERIPHERAL [None]
  - PAIN [None]
  - PLEURAL EFFUSION [None]
  - POST PROCEDURAL COMPLICATION [None]
  - PULMONARY EMBOLISM [None]
  - SUPRAVENTRICULAR TACHYCARDIA [None]
